FAERS Safety Report 6770161-8 (Version None)
Quarter: 2010Q2

REPORT INFORMATION
  Report Type: 
  Country: None (occurrence: None)
  Receive Date: 20100615
  Receipt Date: 20100610
  Transmission Date: 20101027
  Serious: Yes (Death)
  Sender: FDA-Public Use
  Company Number: ES-ABBOTT-10P-144-0650157-00

PATIENT
  Age: 52 Year
  Sex: Male

DRUGS (4)
  1. CLARITHROMYCIN [Suspect]
     Indication: TOOTH ABSCESS
  2. COLCHICINE [Interacting]
     Indication: HYPERURICAEMIA
  3. COLCHICINE [Interacting]
  4. ALLOPURINOL [Concomitant]
     Indication: HYPERURICAEMIA

REACTIONS (3)
  - DRUG INTERACTION [None]
  - DRUG TOXICITY [None]
  - MULTI-ORGAN FAILURE [None]
